FAERS Safety Report 22204095 (Version 4)
Quarter: 2025Q2

REPORT INFORMATION
  Report Type: Spontaneous
  Country: US (occurrence: US)
  Receive Date: 20230412
  Receipt Date: 20250507
  Transmission Date: 20250716
  Serious: No
  Sender: PFIZER
  Company Number: US-PFIZER INC-202300148546

PATIENT
  Age: 76 Year
  Sex: Female

DRUGS (9)
  1. IBRANCE [Suspect]
     Active Substance: PALBOCICLIB
     Indication: Breast cancer female
     Dates: start: 20220621
  2. IBRANCE [Suspect]
     Active Substance: PALBOCICLIB
  3. IBRANCE [Suspect]
     Active Substance: PALBOCICLIB
  4. ASPIRIN [Concomitant]
     Active Substance: ASPIRIN
  5. ASPIRIN [Concomitant]
     Active Substance: ASPIRIN
  6. LORAZEPAM [Concomitant]
     Active Substance: LORAZEPAM
  7. CALCIUM\CHOLECALCIFEROL [Concomitant]
     Active Substance: CALCIUM\CHOLECALCIFEROL
  8. FASLODEX [Concomitant]
     Active Substance: FULVESTRANT
  9. XARELTO [Concomitant]
     Active Substance: RIVAROXABAN

REACTIONS (3)
  - Rash [Not Recovered/Not Resolved]
  - Alopecia [Not Recovered/Not Resolved]
  - Nail growth abnormal [Not Recovered/Not Resolved]

NARRATIVE: CASE EVENT DATE: 20220621
